FAERS Safety Report 16360864 (Version 1)
Quarter: 2019Q2

REPORT INFORMATION
  Report Type: Report from Study
  Country: UG (occurrence: UG)
  Receive Date: 20190528
  Receipt Date: 20190528
  Transmission Date: 20190711
  Serious: Yes (Congenital Anomaly)
  Sender: FDA-Public Use
  Company Number: UG-VIIV HEALTHCARE LIMITED-UG2018GSK158495

PATIENT
  Sex: Male

DRUGS (2)
  1. DOLUTEGRAVIR [Suspect]
     Active Substance: DOLUTEGRAVIR
     Indication: HIV INFECTION
     Dosage: 50 MG, QD
     Route: 064
     Dates: start: 20180626
  2. NEVIRAPINE SYRUP [Concomitant]
     Dosage: 1.5 ML, UNK
     Route: 048
     Dates: start: 20180826

REACTIONS (1)
  - Congenital skin dimples [Not Recovered/Not Resolved]

NARRATIVE: CASE EVENT DATE: 20180826
